FAERS Safety Report 9037866 (Version 1)
Quarter: 2013Q1

REPORT INFORMATION
  Report Type: Spontaneous
  Country: RO (occurrence: RO)
  Receive Date: 20130129
  Receipt Date: 20130129
  Transmission Date: 20140127
  Serious: Yes (Other)
  Sender: FDA-Public Use
  Company Number: RO-UCBSA-076297

PATIENT
  Age: 62 Year
  Sex: Female

DRUGS (3)
  1. NEUPRO [Suspect]
     Indication: PARKINSON^S DISEASE
     Route: 062
     Dates: start: 201212, end: 201212
  2. AMARIL [Concomitant]
     Indication: DIABETES MELLITUS
     Dosage: UNKNOWN DOSE
     Route: 048
  3. AZILECT [Concomitant]
     Indication: PARKINSON^S DISEASE
     Dosage: UNKNOWN DOSE
     Route: 048
     Dates: start: 201109

REACTIONS (2)
  - Hypertension [Recovered/Resolved]
  - Corneal bleeding [Recovered/Resolved]
